FAERS Safety Report 23669690 (Version 1)
Quarter: 2024Q1

REPORT INFORMATION
  Report Type: Spontaneous
  Country: SE (occurrence: SE)
  Receive Date: 20240325
  Receipt Date: 20240325
  Transmission Date: 20240410
  Serious: Yes (Death)
  Sender: FDA-Public Use
  Company Number: None

PATIENT
  Age: 77 Year
  Sex: Female
  Weight: 82 kg

DRUGS (6)
  1. IBRANCE [Suspect]
     Active Substance: PALBOCICLIB
     Indication: Breast cancer metastatic
     Dosage: 75 MG, 1X/DAY
     Route: 048
     Dates: start: 20211229, end: 20240308
  2. ESOMEPRAZOLE [Concomitant]
     Active Substance: ESOMEPRAZOLE
     Dosage: 40 MG, 1X/DAY
     Dates: start: 20240216, end: 20240308
  3. LETROZOLE [Concomitant]
     Active Substance: LETROZOLE
     Dosage: 2.5 MG, 1X/DAY
     Route: 048
     Dates: start: 20211202, end: 20240309
  4. METOCLOPRAMIDE [Concomitant]
     Active Substance: METOCLOPRAMIDE
     Dosage: 10 MG, AS NEEDED (MAXIMUM 3 TABLETS PER DAY)
     Route: 048
     Dates: end: 20240313
  5. DESLORATADINE [Concomitant]
     Active Substance: DESLORATADINE
     Dosage: 5 MG, AS NEEDED
     Route: 048
     Dates: end: 20240313
  6. ACETAMINOPHEN [Concomitant]
     Active Substance: ACETAMINOPHEN
     Dosage: 1000 MG, AS NEEDED (1-2 TABLETS AS NEEDED, MAXIMUM 6 PER DAY)
     Route: 048
     Dates: end: 20240313

REACTIONS (1)
  - Thrombotic microangiopathy [Fatal]

NARRATIVE: CASE EVENT DATE: 20240307
